FAERS Safety Report 7812270-8 (Version None)
Quarter: 2011Q4

REPORT INFORMATION
  Report Type: 
  Country: None (occurrence: None)
  Receive Date: 20111011
  Receipt Date: 20110927
  Transmission Date: 20120403
  Serious: No
  Sender: FDA-Public Use
  Company Number: 2011SP045688

PATIENT
  Age: 19 Year
  Sex: Female

DRUGS (1)
  1. DESOGESTREL AND ETHINYL ESTRADIOL [Suspect]
     Indication: CONTRACEPTION
     Dates: end: 20110926

REACTIONS (4)
  - FATIGUE [None]
  - VISUAL ACUITY REDUCED [None]
  - SOMNOLENCE [None]
  - VAGINAL HAEMORRHAGE [None]
